FAERS Safety Report 8125620-2 (Version None)
Quarter: 2012Q1

REPORT INFORMATION
  Report Type: 
  Country: None (occurrence: None)
  Receive Date: 20120209
  Receipt Date: 20120201
  Transmission Date: 20120608
  Serious: Yes (Hospitalization)
  Sender: FDA-Public Use
  Company Number: US-BAYER-2011-028615

PATIENT
  Age: 17 Year
  Sex: Female
  Weight: 61.224 kg

DRUGS (3)
  1. YASMIN [Suspect]
     Indication: ACNE
  2. YASMIN [Suspect]
     Indication: CONTRACEPTION
     Dosage: UNK
     Dates: start: 20070101, end: 20091201
  3. SYNTHROID [Concomitant]
     Indication: GOITRE
     Dosage: UNK
     Route: 048

REACTIONS (5)
  - ABDOMINAL PAIN UPPER [None]
  - EMOTIONAL DISTRESS [None]
  - GALLBLADDER DISORDER [None]
  - INJURY [None]
  - CHOLECYSTITIS [None]
